FAERS Safety Report 8682819 (Version 4)
Quarter: 2013Q1

REPORT INFORMATION
  Report Type: Spontaneous
  Country: US (occurrence: US)
  Receive Date: 20120725
  Receipt Date: 20130318
  Transmission Date: 20140127
  Serious: Yes (Hospitalization)
  Sender: FDA-Public Use
  Company Number: US-ASTRAZENECA-2012SE48412

PATIENT
  Age: 50 Year
  Sex: Male

DRUGS (3)
  1. SYMBICORT PMDI [Suspect]
     Dosage: UNKNOWN DOSE AND FREQUENCY
     Route: 055
  2. ALBUTEROL [Concomitant]
  3. NEBULIZER [Concomitant]

REACTIONS (7)
  - Asthma [Unknown]
  - Dyspnoea [Unknown]
  - Malaise [Unknown]
  - Condition aggravated [Unknown]
  - Pulmonary congestion [Unknown]
  - Dyspnoea [Unknown]
  - Drug dose omission [Unknown]
